FAERS Safety Report 20943246 (Version 1)
Quarter: 2022Q2

REPORT INFORMATION
  Report Type: Report from Study
  Country: US (occurrence: US)
  Receive Date: 20220610
  Receipt Date: 20220610
  Transmission Date: 20220721
  Serious: Yes (Hospitalization, Other)
  Sender: FDA-Public Use
  Company Number: US-ABBVIE-22K-163-4335876-00

PATIENT
  Age: 80 Year
  Sex: Female
  Weight: 78.088 kg

DRUGS (4)
  1. HUMIRA [Suspect]
     Active Substance: ADALIMUMAB
     Indication: Rheumatoid arthritis
     Route: 058
     Dates: start: 2009
  2. MODERNA COVID-19 VACCINE [Concomitant]
     Active Substance: ELASOMERAN
     Indication: COVID-19 immunisation
     Dosage: FIRST DOSE
     Route: 030
     Dates: start: 20210212, end: 20210212
  3. MODERNA COVID-19 VACCINE [Concomitant]
     Active Substance: ELASOMERAN
     Dosage: SECOND DOSE
     Route: 030
     Dates: start: 20210312, end: 20210312
  4. MODERNA COVID-19 VACCINE [Concomitant]
     Active Substance: ELASOMERAN
     Dosage: BOOSTER DOSE
     Route: 030
     Dates: start: 20211117, end: 20211117

REACTIONS (8)
  - Cerebrovascular accident [Unknown]
  - Urinary tract infection [Recovered/Resolved]
  - Dysarthria [Recovered/Resolved]
  - Neuralgia [Recovering/Resolving]
  - Peripheral nerve injury [Recovering/Resolving]
  - Tooth disorder [Recovered/Resolved]
  - Gait inability [Recovering/Resolving]
  - Confusional state [Unknown]

NARRATIVE: CASE EVENT DATE: 20210309
